FAERS Safety Report 23249627 (Version 8)
Quarter: 2024Q4

REPORT INFORMATION
  Report Type: Report from Study
  Country: CA (occurrence: CA)
  Receive Date: 20231201
  Receipt Date: 20241213
  Transmission Date: 20250114
  Serious: Yes (Hospitalization, Other)
  Sender: TAKEDA
  Company Number: CA-TAKEDA-2022TUS005811

PATIENT
  Age: 72 Year
  Sex: Female

DRUGS (12)
  1. VEDOLIZUMAB [Suspect]
     Active Substance: VEDOLIZUMAB
     Indication: Crohn^s disease
     Dosage: 300 MILLIGRAM
  2. VEDOLIZUMAB [Suspect]
     Active Substance: VEDOLIZUMAB
     Dosage: 300 MILLIGRAM
  3. VEDOLIZUMAB [Suspect]
     Active Substance: VEDOLIZUMAB
     Dosage: 300 MILLIGRAM
  4. VEDOLIZUMAB [Suspect]
     Active Substance: VEDOLIZUMAB
     Dosage: 300 MILLIGRAM
  5. VEDOLIZUMAB [Suspect]
     Active Substance: VEDOLIZUMAB
     Dosage: 300 MILLIGRAM
  6. VEDOLIZUMAB [Suspect]
     Active Substance: VEDOLIZUMAB
     Dosage: 300 MILLIGRAM
  7. VEDOLIZUMAB [Suspect]
     Active Substance: VEDOLIZUMAB
     Dosage: 300 MILLIGRAM
  8. VEDOLIZUMAB [Suspect]
     Active Substance: VEDOLIZUMAB
     Dosage: 300 MILLIGRAM
  9. VEDOLIZUMAB [Suspect]
     Active Substance: VEDOLIZUMAB
     Dosage: 300 MILLIGRAM
  10. LYRICA [Concomitant]
     Active Substance: PREGABALIN
     Dosage: UNK
  11. PROZAC [Concomitant]
     Active Substance: FLUOXETINE HYDROCHLORIDE
     Dosage: UNK
  12. METAMUCIL [Concomitant]
     Active Substance: PLANTAGO SEED
     Dosage: UNK

REACTIONS (30)
  - Rectal haemorrhage [Unknown]
  - Gastrointestinal infection [Unknown]
  - Blood phosphorus decreased [Unknown]
  - Hyponatraemia [Recovered/Resolved]
  - Hypokalaemia [Unknown]
  - Malaise [Unknown]
  - Immunodeficiency [Unknown]
  - Genital herpes [Unknown]
  - Vomiting [Unknown]
  - Pneumonia [Recovering/Resolving]
  - Pancreatitis [Recovering/Resolving]
  - Large intestine polyp [Unknown]
  - Gastrointestinal polyp [Unknown]
  - Abdominal discomfort [Unknown]
  - Anxiety [Unknown]
  - Anal haemorrhage [Unknown]
  - Device related infection [Unknown]
  - Frequent bowel movements [Unknown]
  - Faeces discoloured [Unknown]
  - Joint swelling [Unknown]
  - Migraine [Unknown]
  - Gastric polyps [Unknown]
  - Gastrointestinal disorder [Unknown]
  - Dyspnoea [Recovering/Resolving]
  - Abdominal pain [Unknown]
  - Dyspepsia [Unknown]
  - Discoloured vomit [Not Recovered/Not Resolved]
  - Diarrhoea [Not Recovered/Not Resolved]
  - Asthenia [Not Recovered/Not Resolved]
  - Nausea [Not Recovered/Not Resolved]

NARRATIVE: CASE EVENT DATE: 20240312
